FAERS Safety Report 5020629-X (Version None)
Quarter: 2006Q2

REPORT INFORMATION
  Report Type: 
  Country: None (occurrence: None)
  Receive Date: 20060607
  Receipt Date: 20060530
  Transmission Date: 20061013
  Serious: Yes (Other)
  Sender: FDA-Public Use
  Company Number: DE-MERCK-0606DEU00024

PATIENT
  Age: 68 Year
  Sex: Female

DRUGS (2)
  1. FOSAMAX [Suspect]
     Indication: OSTEOPOROSIS
     Route: 048
     Dates: start: 20060501, end: 20060530
  2. METHYLPREDNISOLONE [Concomitant]
     Route: 065

REACTIONS (3)
  - FACIAL PALSY [None]
  - HYPOAESTHESIA ORAL [None]
  - SWELLING FACE [None]
